FAERS Safety Report 9985339 (Version 1)
Quarter: 2014Q1

REPORT INFORMATION
  Report Type: Spontaneous
  Country: US (occurrence: US)
  Receive Date: 20140307
  Receipt Date: 20140307
  Transmission Date: 20141002
  Serious: Yes (Other)
  Sender: FDA-Public Use
  Company Number: US-ABBVIE-14P-163-1185533-00

PATIENT
  Age: 48 Year
  Sex: Male
  Weight: 88.08 kg

DRUGS (1)
  1. HUMIRA [Suspect]
     Indication: PSORIATIC ARTHROPATHY
     Dates: start: 20120111, end: 20130828

REACTIONS (2)
  - Kaposi^s sarcoma [Not Recovered/Not Resolved]
  - Psoriasis [Unknown]
